FAERS Safety Report 7539571-5 (Version None)
Quarter: 2011Q2

REPORT INFORMATION
  Report Type: 
  Country: None (occurrence: None)
  Receive Date: 20110610
  Receipt Date: 20110601
  Transmission Date: 20111010
  Serious: Yes (Other)
  Sender: FDA-Public Use
  Company Number: US-ASTRAZENECA-2009SE34001

PATIENT
  Age: 54 Year
  Sex: Female

DRUGS (1)
  1. NEXIUM [Suspect]
     Route: 048

REACTIONS (7)
  - AMNESIA [None]
  - THINKING ABNORMAL [None]
  - GAIT DISTURBANCE [None]
  - BALANCE DISORDER [None]
  - MYOCARDIAL INFARCTION [None]
  - ABDOMINAL PAIN [None]
  - LOWER LIMB FRACTURE [None]
